FAERS Safety Report 9357987 (Version 1)
Quarter: 2013Q2

REPORT INFORMATION
  Report Type: Spontaneous
  Country: US (occurrence: US)
  Receive Date: 20130620
  Receipt Date: 20130620
  Transmission Date: 20140414
  Serious: Yes (Other)
  Sender: FDA-Public Use
  Company Number: US-PFIZER INC-2013180587

PATIENT
  Age: 35 Year
  Sex: Male

DRUGS (2)
  1. DEXAMETHASONE SODIUM PHOSPHATE [Suspect]
     Indication: PULMONARY SARCOIDOSIS
     Dosage: UNK
  2. DEXAMETHASONE SODIUM PHOSPHATE [Suspect]
     Indication: CEREBRAL SARCOIDOSIS

REACTIONS (2)
  - Fungal abscess central nervous system [Recovering/Resolving]
  - Immune system disorder [Unknown]
